FAERS Safety Report 7959588-6 (Version None)
Quarter: 2011Q4

REPORT INFORMATION
  Report Type: 
  Country: None (occurrence: None)
  Receive Date: 20111206
  Receipt Date: 20111125
  Transmission Date: 20120403
  Serious: Yes (Other)
  Sender: FDA-Public Use
  Company Number: PT-GLAXOSMITHKLINE-B0767093A

PATIENT
  Sex: Female
  Weight: 72 kg

DRUGS (1)
  1. NICOTINE [Suspect]
     Indication: PRODUCT USED FOR UNKNOWN INDICATION
     Dosage: 14MG PER DAY
     Route: 062
     Dates: start: 20111102, end: 20111102

REACTIONS (5)
  - DIZZINESS [None]
  - SYNCOPE [None]
  - VOMITING [None]
  - FEELING HOT [None]
  - TREMOR [None]
